FAERS Safety Report 4853763-5 (Version None)
Quarter: 2005Q4

REPORT INFORMATION
  Report Type: 
  Country: None (occurrence: None)
  Receive Date: 20051212
  Receipt Date: 20051129
  Transmission Date: 20060501
  Serious: Yes (Hospitalization)
  Sender: FDA-Public Use
  Company Number: 2005138630

PATIENT
  Age: 81 Year
  Sex: Female
  Weight: 49.8957 kg

DRUGS (8)
  1. DETROL LA [Suspect]
     Indication: HYPERTONIC BLADDER
     Dosage: 1 IN 1 D, ORAL
     Route: 048
     Dates: start: 20050810
  2. FUROSEMIDE [Concomitant]
  3. CELEBREX [Concomitant]
  4. NEXIUM [Concomitant]
  5. ACTONEL [Concomitant]
  6. ACETAMINOPHEN [Concomitant]
  7. VITAMINS (VITAMINS) [Concomitant]
  8. CALCIUM (CALCIUM) [Concomitant]

REACTIONS (3)
  - CONDITION AGGRAVATED [None]
  - DRY MOUTH [None]
  - HIATUS HERNIA [None]
